FAERS Safety Report 7978119-8 (Version None)
Quarter: 2011Q4

REPORT INFORMATION
  Report Type: 
  Country: None (occurrence: None)
  Receive Date: 20111201
  Receipt Date: 20111122
  Transmission Date: 20120403
  Serious: Yes (Disabling, Other)
  Sender: FDA-Public Use
  Company Number: 2011SP055083

PATIENT
  Age: 73 Year
  Sex: Male
  Weight: 49.3 kg

DRUGS (10)
  1. DOXAZOSIN MESYLATE [Concomitant]
  2. PIROLACTON [Concomitant]
  3. REBETOL [Suspect]
     Indication: HEPATITIS C
     Dosage: 400 MG; QD; PO
     Route: 048
     Dates: start: 20110215, end: 20110309
  4. PLAVIX [Concomitant]
  5. SITAGLIPTIN PHOSHPHATE HYDRATE [Concomitant]
  6. INTERFERON BETA NOS [Suspect]
     Indication: HEPATITIS C
     Dosage: 6 MIU; QD; INDRP
     Route: 041
     Dates: start: 20110215, end: 20110309
  7. ADALAT [Concomitant]
  8. FAMOTIDINE [Concomitant]
  9. ZOLPIDEM [Concomitant]
  10. OLMESARTAN MEDOXOMIL [Concomitant]

REACTIONS (3)
  - MALAISE [None]
  - PROTEINURIA [None]
  - PYREXIA [None]
